FAERS Safety Report 5268805-5 (Version None)
Quarter: 2007Q1

REPORT INFORMATION
  Report Type: 
  Country: None (occurrence: None)
  Receive Date: 20070319
  Receipt Date: 20070305
  Transmission Date: 20070707
  Serious: Yes (Hospitalization)
  Sender: FDA-Public Use
  Company Number: PHRM2007FR00972

PATIENT
  Age: 73 Year
  Sex: Male

DRUGS (13)
  1. ZOMETA [Suspect]
     Indication: MULTIPLE MYELOMA
     Route: 042
     Dates: start: 20060215, end: 20070101
  2. THALIDOMIDE [Suspect]
     Dosage: 100 MG DAILY
     Route: 048
     Dates: start: 20060215, end: 20070101
  3. ALKERAN [Suspect]
     Indication: MULTIPLE MYELOMA
     Dosage: 12 MG DAILY
     Dates: start: 20060215, end: 20070101
  4. SOLUPRED [Suspect]
     Indication: MULTIPLE MYELOMA
     Dosage: 80 MG DAILY
     Dates: start: 20060201, end: 20070101
  5. LOXEN [Concomitant]
  6. TENORDATE [Concomitant]
  7. PHYSIOTENS [Concomitant]
  8. LIPUR [Concomitant]
  9. GLUCOPHAGE [Concomitant]
  10. SERMION [Concomitant]
  11. QUESTRAN [Concomitant]
  12. ESOMEPRAZOLE MAGNESIUM [Concomitant]
  13. LASIX [Concomitant]

REACTIONS (5)
  - DYSPNOEA [None]
  - NEUTROPENIA [None]
  - PULMONARY HYPERTENSION [None]
  - RALES [None]
  - STOMATITIS [None]
